FAERS Safety Report 4709465-9 (Version None)
Quarter: 2005Q3

REPORT INFORMATION
  Report Type: 
  Country: None (occurrence: None)
  Receive Date: 20050708
  Receipt Date: 20050429
  Transmission Date: 20060218
  Serious: Yes (Other)
  Sender: FDA-Public Use
  Company Number: 001#1#2005-00151

PATIENT
  Age: 45 Year
  Sex: Female

DRUGS (3)
  1. NARAMIG [Suspect]
     Indication: MIGRAINE
     Route: 048
     Dates: start: 19990101, end: 20041209
  2. HYPERICUM [Concomitant]
     Route: 048
  3. HAY FEVER MEDICATION [Concomitant]
     Route: 065
     Dates: start: 20010101

REACTIONS (3)
  - AUTOIMMUNE HEPATITIS [None]
  - CARDIAC DISORDER [None]
  - HEPATIC ENZYME INCREASED [None]
